FAERS Safety Report 5057875-5 (Version None)
Quarter: 2006Q3

REPORT INFORMATION
  Report Type: 
  Country: None (occurrence: None)
  Receive Date: 20060721
  Receipt Date: 20060321
  Transmission Date: 20061208
  Serious: No
  Sender: FDA-Public Use
  Company Number: US-GLAXOSMITHKLINE-A0598431A

PATIENT
  Age: 66 Year
  Sex: Male

DRUGS (14)
  1. AVANDIA [Suspect]
     Dosage: 8MG PER DAY
     Route: 048
     Dates: start: 19990101
  2. AMIODARONE HCL [Suspect]
     Indication: ARRHYTHMIA
     Route: 048
     Dates: end: 20060101
  3. GLYBURIDE [Suspect]
     Route: 048
     Dates: end: 20060101
  4. METFORMIN [Concomitant]
  5. GLYBURIDE [Concomitant]
  6. AMIODARONE HCL [Concomitant]
  7. LISINOPRIL [Concomitant]
  8. LOVASTATIN [Concomitant]
  9. FUROSEMIDE [Concomitant]
  10. RANITIDINE [Concomitant]
  11. POTASSIUM CHLORIDE [Concomitant]
  12. XANAX [Concomitant]
  13. ASPIRIN [Concomitant]
  14. ALEVE (CAPLET) [Concomitant]

REACTIONS (4)
  - BLOOD GLUCOSE DECREASED [None]
  - BLOOD GLUCOSE INCREASED [None]
  - HEART RATE INCREASED [None]
  - WEIGHT INCREASED [None]
